FAERS Safety Report 14554572 (Version 4)
Quarter: 2018Q3

REPORT INFORMATION
  Report Type: Spontaneous
  Country: DK (occurrence: DK)
  Receive Date: 20180220
  Receipt Date: 20180830
  Transmission Date: 20181010
  Serious: Yes (Death, Life-Threatening, Hospitalization, Other)
  Sender: FDA-Public Use
  Company Number: PHHY2013DK176298

PATIENT
  Age: 32 Year
  Sex: Female
  Weight: 83 kg

DRUGS (24)
  1. ROXIAM [Suspect]
     Active Substance: REMOXIPRIDE HYDROCHLORIDE
     Indication: PRODUCT USED FOR UNKNOWN INDICATION
     Dosage: UNK
     Route: 065
  2. OXAZEPAM. [Concomitant]
     Active Substance: OXAZEPAM
     Indication: PRODUCT USED FOR UNKNOWN INDICATION
     Dosage: 15 MG, AS NEEDED NO MORE THAN 4 TIMES DAILY
     Route: 065
  3. RIVOTRIL [Suspect]
     Active Substance: CLONAZEPAM
     Dosage: 2 MG, QD
     Route: 048
     Dates: start: 20050714
  4. RISPERDAL [Suspect]
     Active Substance: RISPERIDONE
     Indication: SCHIZOPHRENIA
     Dosage: DOSIS: 2 MG 3 GANGE DAGLIGTSTYRKE: 2 MILLIGRAM(S)
     Route: 048
     Dates: start: 20050706
  5. PINEX [Concomitant]
     Active Substance: ACETAMINOPHEN
     Indication: PRODUCT USED FOR UNKNOWN INDICATION
     Dosage: 1 GRAM AS NEEDED NO MORE THAN 3 TIMES DAILY
     Route: 048
  6. RISPERDAL CONSTA [Suspect]
     Active Substance: RISPERIDONE
     Dosage: 25 MG, UNK
     Route: 030
     Dates: start: 20050714
  7. ORAP [Suspect]
     Active Substance: PIMOZIDE
     Dosage: 8 MG (6 MILLIGRAM(S))
     Route: 048
     Dates: start: 20050714
  8. LYSANTIN [Suspect]
     Active Substance: ORPHENADRINE HYDROCHLORIDE
     Indication: PRODUCT USED FOR UNKNOWN INDICATION
     Dosage: UNK
     Route: 065
  9. SEROQUEL [Suspect]
     Active Substance: QUETIAPINE FUMARATE
     Indication: PSYCHOTIC DISORDER
     Dosage: 450 MG, UNK
     Route: 048
     Dates: start: 19921122
  10. PRIMPERAN [Concomitant]
     Active Substance: METOCLOPRAMIDE HYDROCHLORIDE
     Indication: PRODUCT USED FOR UNKNOWN INDICATION
     Dosage: 20 MG AS NEEDED NO MORE THAN 2 TIMES DAILY
     Route: 054
  11. DESOGESTREL AND ETHINYL ESTRADIOL [Concomitant]
     Active Substance: DESOGESTREL\ETHINYL ESTRADIOL
     Indication: PRODUCT USED FOR UNKNOWN INDICATION
     Dosage: UNK
     Route: 048
  12. PANTOLOC [Concomitant]
     Active Substance: PANTOPRAZOLE SODIUM
     Indication: GASTRIC ULCER
     Dosage: 40 MG, UNK
     Route: 048
  13. RIVOTRIL [Suspect]
     Active Substance: CLONAZEPAM
     Indication: PSYCHOTIC DISORDER
     Dosage: 2 MG, QD
     Route: 048
     Dates: start: 19940810
  14. DISIPAL [Suspect]
     Active Substance: ORPHENADRINE HYDROCHLORIDE
     Indication: ADVERSE DRUG REACTION
     Dosage: 50 MG, QD
     Route: 048
     Dates: start: 19990714, end: 20050714
  15. GAVISCON [Concomitant]
     Active Substance: ALUMINUM HYDROXIDE\MAGNESIUM CARBONATE
     Indication: PRODUCT USED FOR UNKNOWN INDICATION
     Dosage: 15 ML AS NEEDED NO MORE THAN 3 TIMES DAILY
     Route: 048
  16. TRILEPTAL [Suspect]
     Active Substance: OXCARBAZEPINE
     Indication: EPILEPSY
     Dosage: UNK
     Route: 065
  17. RISPERDAL [Suspect]
     Active Substance: RISPERIDONE
     Dosage: DOSIS: 2 MG 3 GANGE DAGLIGTSTYRKE: 2 MILLIGRAM(S)
     Route: 048
     Dates: start: 20050714
  18. TRUXAL [Suspect]
     Active Substance: CHLORPROTHIXENE
     Indication: PSYCHOTIC DISORDER
     Dosage: DOSIS: 50?100 MG EFTER BEHOV H?JST 250 MG PR. D?GN
     Route: 048
     Dates: start: 19980712
  19. DEPRAKINE [Suspect]
     Active Substance: VALPROIC ACID
     Indication: EPILEPSY
     Dosage: UNK
     Route: 065
  20. TRUXAL [Suspect]
     Active Substance: CHLORPROTHIXENE
     Dosage: DOSIS: 50?100 MG EFTER BEHOV H?JST 250 MG PR. D?GN
     Route: 048
     Dates: start: 20050714
  21. RISPERDAL CONSTA [Suspect]
     Active Substance: RISPERIDONE
     Indication: SCHIZOPHRENIA
     Dosage: 25 MG, UNK
     Route: 030
     Dates: start: 20050706
  22. ORAP [Suspect]
     Active Substance: PIMOZIDE
     Indication: PSYCHOTIC DISORDER
     Dosage: 8 MG (6 MILLIGRAM(S))
     Route: 048
     Dates: start: 19921014
  23. SEROQUEL [Suspect]
     Active Substance: QUETIAPINE FUMARATE
     Dosage: 450 MG, UNK
     Route: 048
     Dates: start: 20050714
  24. STILNOCT [Suspect]
     Active Substance: ZOLPIDEM TARTRATE
     Indication: PRODUCT USED FOR UNKNOWN INDICATION
     Dosage: UNK
     Route: 065

REACTIONS (23)
  - Sudden death [Fatal]
  - Seizure [Fatal]
  - Vomiting [Not Recovered/Not Resolved]
  - Toothache [Unknown]
  - Anxiety [Unknown]
  - Oropharyngeal pain [Unknown]
  - Sleep disorder [Not Recovered/Not Resolved]
  - Abdominal pain upper [Unknown]
  - Psychotic disorder [Unknown]
  - Schizophrenia [Unknown]
  - Weight increased [Not Recovered/Not Resolved]
  - Vomiting projectile [Unknown]
  - Nightmare [Not Recovered/Not Resolved]
  - Aggression [Unknown]
  - Weight decreased [Unknown]
  - Hepatic pain [Unknown]
  - Hallucination [Unknown]
  - Ill-defined disorder [Unknown]
  - Amenorrhoea [Recovered/Resolved]
  - Dyspnoea [Unknown]
  - Dizziness [Unknown]
  - Neuroleptic malignant syndrome [Not Recovered/Not Resolved]
  - Restlessness [Not Recovered/Not Resolved]

NARRATIVE: CASE EVENT DATE: 1993
